FAERS Safety Report 19626420 (Version 1)
Quarter: 2021Q3

REPORT INFORMATION
  Report Type: Spontaneous
  Country: US (occurrence: US)
  Receive Date: 20210728
  Receipt Date: 20210728
  Transmission Date: 20211014
  Serious: No
  Sender: FDA-Public Use
  Company Number: US-BEH-2021134401

PATIENT
  Age: 55 Year
  Sex: Female

DRUGS (1)
  1. HIZENTRA [Suspect]
     Active Substance: HUMAN IMMUNOGLOBULIN G
     Indication: SELECTIVE IGG SUBCLASS DEFICIENCY
     Dosage: 20 GRAM, QW
     Route: 058
     Dates: start: 20180307

REACTIONS (3)
  - Injection site extravasation [Unknown]
  - Injection site scar [Unknown]
  - Malabsorption from injection site [Unknown]

NARRATIVE: CASE EVENT DATE: 20210721
